FAERS Safety Report 6209626-6 (Version None)
Quarter: 2009Q2

REPORT INFORMATION
  Report Type: 
  Country: None (occurrence: None)
  Receive Date: 20090601
  Receipt Date: 20090528
  Transmission Date: 20091009
  Serious: No
  Sender: FDA-Public Use
  Company Number: US-B.I. PHARMACEUTICALS,INC./RIDGEFIELD-2009-BP-05974BP

PATIENT
  Sex: Female

DRUGS (6)
  1. SPIRIVA [Suspect]
     Indication: HYPOXIA
     Dosage: 18MCG
     Route: 055
     Dates: start: 20081226, end: 20090101
  2. SPIRIVA [Suspect]
     Indication: LUNG DISORDER
  3. LIPITOR [Concomitant]
     Indication: BLOOD CHOLESTEROL INCREASED
  4. DIOVAN [Concomitant]
     Indication: HYPERTENSION
  5. SYNTHROID [Concomitant]
     Indication: HYPOTHYROIDISM
  6. FOSAMAX [Concomitant]

REACTIONS (2)
  - ANXIETY [None]
  - PALPITATIONS [None]
